FAERS Safety Report 9844829 (Version 1)
Quarter: 2014Q1

REPORT INFORMATION
  Report Type: Spontaneous
  Country: NL (occurrence: NL)
  Receive Date: 20140127
  Receipt Date: 20140127
  Transmission Date: 20141002
  Serious: Yes (Other)
  Sender: FDA-Public Use
  Company Number: NL-ENDO PHARMACEUTICALS INC.-FRVA20140002

PATIENT
  Age: 55 Year
  Sex: Female

DRUGS (3)
  1. FROVA TABLETS 2.5MG [Suspect]
     Indication: MIGRAINE
     Route: 048
     Dates: start: 2011
  2. THYRAX [Concomitant]
     Indication: PRODUCT USED FOR UNKNOWN INDICATION
     Route: 065
     Dates: start: 20020815
  3. LITHIUM [Concomitant]
     Indication: PRODUCT USED FOR UNKNOWN INDICATION
     Route: 065
     Dates: start: 19890115

REACTIONS (1)
  - Psychotic disorder [Recovered/Resolved]
